FAERS Safety Report 15035950 (Version 1)
Quarter: 2018Q2

REPORT INFORMATION
  Report Type: Spontaneous
  Country: DE (occurrence: DE)
  Receive Date: 20180620
  Receipt Date: 20180620
  Transmission Date: 20180711
  Serious: Yes (Hospitalization, Other)
  Sender: FDA-Public Use
  Company Number: DE-WEST-WARD PHARMACEUTICALS CORP.-DE-H14001-18-05011

PATIENT
  Sex: Male
  Weight: 70 kg

DRUGS (10)
  1. PACLITAXEL. [Suspect]
     Active Substance: PACLITAXEL
     Indication: LUNG NEOPLASM MALIGNANT
     Route: 042
     Dates: start: 20130318, end: 20130722
  2. AVASTIN [Suspect]
     Active Substance: BEVACIZUMAB
     Indication: LUNG ADENOCARCINOMA
     Route: 042
     Dates: start: 20130225, end: 20130715
  3. VERGENTAN [Concomitant]
     Active Substance: ALIZAPRIDE HYDROCHLORIDE
     Indication: PREMEDICATION
     Dosage: DAY 1, DAY 8, REPETITION DAY 22
     Route: 042
     Dates: start: 20130121, end: 20130304
  4. TAVEGIL [Concomitant]
     Active Substance: CLEMASTINE FUMARATE
     Indication: PREMEDICATION
     Route: 042
     Dates: start: 20130225, end: 20130722
  5. DEXAMETHASON [Concomitant]
     Active Substance: DEXAMETHASONE
     Indication: LUNG CANCER METASTATIC
     Dosage: DAY 1, DAY 8, REPETITION DAY 22
     Route: 042
     Dates: start: 20130121, end: 20130722
  6. CISPLATIN. [Suspect]
     Active Substance: CISPLATIN
     Indication: LUNG NEOPLASM MALIGNANT
     Dosage: ON DAY 1 AND 8 OF EACH 3 WEEK CYCLE.
     Route: 042
     Dates: start: 20130121, end: 20130304
  7. RANITIC [Concomitant]
     Active Substance: RANITIDINE HYDROCHLORIDE
     Indication: PRODUCT USED FOR UNKNOWN INDICATION
     Dosage: GIVEN ON DAY 1, 8 AND 15 OF CYCLE
     Route: 042
     Dates: start: 20130318, end: 20130722
  8. GRANISETRON [Concomitant]
     Active Substance: GRANISETRON
     Indication: PREMEDICATION
     Dosage: DAY 1, DAY 8, REPETITION DAY 22
     Route: 042
     Dates: start: 20130121, end: 20130722
  9. CARBOPLATIN. [Suspect]
     Active Substance: CARBOPLATIN
     Indication: LUNG NEOPLASM MALIGNANT
     Route: 042
     Dates: start: 20130318, end: 20130715
  10. PEMETREXED DISODIUM [Suspect]
     Active Substance: PEMETREXED DISODIUM
     Indication: LUNG NEOPLASM MALIGNANT
     Route: 042
     Dates: start: 20130121, end: 20130218

REACTIONS (4)
  - General physical health deterioration [Not Recovered/Not Resolved]
  - Hypoacusis [Unknown]
  - Tinnitus [Unknown]
  - Leukopenia [Recovering/Resolving]

NARRATIVE: CASE EVENT DATE: 20130225
